FAERS Safety Report 4658805-8 (Version None)
Quarter: 2005Q2

REPORT INFORMATION
  Report Type: 
  Country: None (occurrence: None)
  Receive Date: 20050511
  Receipt Date: 20050429
  Transmission Date: 20051028
  Serious: Yes (Hospitalization)
  Sender: FDA-Public Use
  Company Number: CH-ROCHE-403318

PATIENT
  Age: 43 Year
  Sex: Male
  Weight: 60 kg

DRUGS (5)
  1. PEGASYS [Suspect]
     Route: 058
     Dates: start: 20050114, end: 20050128
  2. REBETOL [Suspect]
     Route: 048
     Dates: start: 20050114, end: 20050131
  3. XENALON [Concomitant]
     Route: 048
     Dates: start: 20040615
  4. TEMESTA [Concomitant]
     Route: 048
     Dates: start: 20040615
  5. ZURCAL [Concomitant]
     Route: 048
     Dates: start: 20040615

REACTIONS (2)
  - ACUTE PSYCHOSIS [None]
  - DELUSION [None]
